FAERS Safety Report 10185131 (Version 1)
Quarter: 2014Q2

REPORT INFORMATION
  Report Type: Spontaneous
  Country: US (occurrence: None)
  Receive Date: 20140519
  Receipt Date: 20140519
  Transmission Date: 20141212
  Serious: Yes (Other)
  Sender: FDA-Public Use
  Company Number: AUR-APL-2014-05649

PATIENT
  Sex: Male

DRUGS (4)
  1. LOSARTAN+HYDROCHLOROTHIAZIDE [Suspect]
     Indication: HYPERTENSION
     Dates: end: 201405
  2. CHANTIX [Suspect]
     Indication: SMOKING CESSATION THERAPY
     Dosage: 0.5 MG (0.5 MG, 1 IN 1 D), ORAL
     Route: 048
     Dates: start: 20131208
  3. SPIRIVA [Concomitant]
  4. METFORMIN (METFORMIN) [Concomitant]

REACTIONS (1)
  - Blood pressure increased [None]
